FAERS Safety Report 17819950 (Version 4)
Quarter: 2020Q3

REPORT INFORMATION
  Report Type: Spontaneous
  Country: CA (occurrence: CA)
  Receive Date: 20200525
  Receipt Date: 20200706
  Transmission Date: 20201102
  Serious: Yes (Hospitalization)
  Sender: FDA-Public Use
  Company Number: CA-CELLTRION INC.-2020CA020512

PATIENT

DRUGS (8)
  1. INFLECTRA [Suspect]
     Active Substance: INFLIXIMAB-DYYB
     Dosage: 700 MG, AT 2, 6, THEN EVERY 8 WEEKS
     Route: 042
     Dates: start: 20200207
  2. IMURAN [Concomitant]
     Active Substance: AZATHIOPRINE
     Dosage: UNK
     Route: 065
  3. INFLECTRA [Suspect]
     Active Substance: INFLIXIMAB-DYYB
     Dosage: 700 MG, AS SOON AS POSSIBLE, THEN EVERY 6 WEEKS
     Route: 042
     Dates: start: 20200422, end: 20200422
  4. INFLECTRA [Suspect]
     Active Substance: INFLIXIMAB-DYYB
     Dosage: 680 MG, AT 2, 6, THEN EVERY 8 WEEKS
     Route: 042
     Dates: start: 20200422, end: 20200422
  5. INFLECTRA [Suspect]
     Active Substance: INFLIXIMAB-DYYB
     Dosage: 700 MG, AT 2, 6, THEN EVERY 8 WEEKS
     Route: 042
     Dates: start: 20200302
  6. INFLECTRA [Suspect]
     Active Substance: INFLIXIMAB-DYYB
     Dosage: 700 MG, AS SOON AS POSSIBLE, THEN EVERY 6 WEEKS
     Route: 042
  7. PREDNISONE. [Concomitant]
     Active Substance: PREDNISONE
     Dosage: UNK
     Route: 065
     Dates: start: 20200120
  8. INFLECTRA [Suspect]
     Active Substance: INFLIXIMAB-DYYB
     Indication: COLITIS ULCERATIVE
     Dosage: 700 MG, AT 2, 6, THEN EVERY 8 WEEKS
     Route: 042
     Dates: start: 20200125

REACTIONS (9)
  - Asthenia [Unknown]
  - Decreased appetite [Unknown]
  - Weight decreased [Recovered/Resolved]
  - Malaise [Unknown]
  - Product administration error [Unknown]
  - Condition aggravated [Unknown]
  - Off label use [Unknown]
  - Anaemia [Unknown]
  - Weight increased [Unknown]

NARRATIVE: CASE EVENT DATE: 2020
